FAERS Safety Report 6846021-0 (Version None)
Quarter: 2010Q3

REPORT INFORMATION
  Report Type: 
  Country: None (occurrence: None)
  Receive Date: 20100715
  Receipt Date: 20070902
  Transmission Date: 20110219
  Serious: No
  Sender: FDA-Public Use
  Company Number: US-PFIZER INC-2007074185

PATIENT
  Age: 43 Year
  Sex: Male
  Weight: 72.7 kg

DRUGS (1)
  1. CHANTIX [Suspect]
     Indication: SMOKING CESSATION THERAPY
     Dates: start: 20070706

REACTIONS (3)
  - ABNORMAL DREAMS [None]
  - INSOMNIA [None]
  - SLEEP DISORDER [None]
